FAERS Safety Report 7600168-X (Version None)
Quarter: 2011Q3

REPORT INFORMATION
  Report Type: 
  Country: None (occurrence: None)
  Receive Date: 20110711
  Receipt Date: 20110701
  Transmission Date: 20111222
  Serious: Yes (Hospitalization)
  Sender: FDA-Public Use
  Company Number: PHHO2011FR09393

PATIENT
  Sex: Female
  Weight: 43 kg

DRUGS (8)
  1. NEXIUM [Concomitant]
  2. BACTRIM DS [Concomitant]
  3. VALACYCLOVIR [Concomitant]
  4. CELLCEPT [Concomitant]
     Indication: RENAL TRANSPLANT
     Dosage: 3 G
     Route: 048
     Dates: start: 20110402
  5. SANDIMMUNE [Suspect]
     Indication: RENAL TRANSPLANT
     Dosage: UNK
     Route: 048
     Dates: start: 20110609
  6. CALCIPARINE [Concomitant]
  7. PREDNISONE [Concomitant]
     Indication: RENAL TRANSPLANT
     Dosage: 10 MG
     Route: 048
     Dates: start: 20110406
  8. NEORAL [Suspect]
     Indication: RENAL TRANSPLANT
     Dosage: 150 MG
     Route: 048
     Dates: start: 20110403, end: 20110609

REACTIONS (1)
  - GLOMERULONEPHRITIS [None]
